FAERS Safety Report 6991742-2 (Version None)
Quarter: 2010Q3

REPORT INFORMATION
  Report Type: 
  Country: None (occurrence: None)
  Receive Date: 20100916
  Receipt Date: 20100916
  Transmission Date: 20110219
  Serious: Yes (Other)
  Sender: FDA-Public Use
  Company Number: None

PATIENT
  Age: 18 Year
  Sex: Female
  Weight: 54.0688 kg

DRUGS (1)
  1. NORETHINDRONE [Suspect]
     Indication: CONTRACEPTION
     Dates: start: 20100809

REACTIONS (2)
  - DRUG INTOLERANCE [None]
  - MALAISE [None]
